FAERS Safety Report 5869765-6 (Version None)
Quarter: 2008Q3

REPORT INFORMATION
  Report Type: 
  Country: None (occurrence: None)
  Receive Date: 20080902
  Receipt Date: 20080903
  Transmission Date: 20090109
  Serious: No
  Sender: FDA-Public Use
  Company Number: FPI-06-031

PATIENT
  Age: 28 Year
  Sex: Female

DRUGS (2)
  1. CLOMID [Suspect]
     Indication: INFERTILITY
     Dosage: 150 MG DAILY
     Dates: start: 20060515
  2. REPRONEX [Suspect]
     Indication: INFERTILITY
     Dosage: 150 IU DAILY
     Dates: start: 20060515

REACTIONS (1)
  - OVARIAN CYST [None]
